FAERS Safety Report 8930264 (Version 1)
Quarter: 2012Q4

REPORT INFORMATION
  Report Type: Report from Study
  Country: US (occurrence: US)
  Receive Date: 20121128
  Receipt Date: 20121128
  Transmission Date: 20130627
  Serious: Yes (Death, Hospitalization)
  Sender: FDA-Public Use
  Company Number: US-009507513-1211USA008989

PATIENT
  Age: 54 None
  Sex: Male
  Weight: 93.7 kg

DRUGS (12)
  1. COLACE [Concomitant]
     Dosage: UNK
     Dates: start: 20091002
  2. BACTRIM DS [Concomitant]
     Dosage: UNK
     Dates: start: 20090923
  3. DIOVAN [Concomitant]
     Dosage: UNK
     Dates: start: 20091113
  4. MINOCYCLINE [Concomitant]
     Dosage: UNK
     Dates: start: 20091019
  5. DECADRON (DEXAMETHASONE) [Concomitant]
     Dosage: UNK
     Dates: start: 20091123
  6. MEGACE [Concomitant]
     Dosage: UNK
     Dates: start: 20091124
  7. TEMOZOLOMIDE [Suspect]
     Indication: GLIOBLASTOMA MULTIFORME
     Dosage: 200 mg/m2, qd
     Route: 048
     Dates: start: 20090925, end: 20091127
  8. BEVACIZUMAB [Suspect]
     Indication: GLIOBLASTOMA MULTIFORME
     Dosage: 10 mg/kg 1 en 2 week
     Route: 042
     Dates: start: 20091007, end: 20091123
  9. ERLOTINIB HYDROCHLORIDE [Suspect]
     Indication: GLIOBLASTOMA MULTIFORME
     Dosage: 150 mg/m2, qd
     Route: 048
     Dates: start: 20090925, end: 20091203
  10. KEPRA [Concomitant]
     Dosage: UNK
     Dates: start: 20090911
  11. PRILOSEC [Concomitant]
     Dosage: UNK
     Dates: start: 20090911
  12. TYLENOL [Concomitant]
     Dosage: UNK
     Dates: start: 20090911

REACTIONS (4)
  - Pneumothorax [Fatal]
  - Opportunistic infection [Fatal]
  - Bronchial fistula [Fatal]
  - Lymphopenia [Fatal]
